FAERS Safety Report 5318678-7 (Version None)
Quarter: 2007Q2

REPORT INFORMATION
  Report Type: 
  Country: None (occurrence: None)
  Receive Date: 20070508
  Receipt Date: 20070503
  Transmission Date: 20071010
  Serious: Yes (Life-Threatening, Hospitalization, Disabling)
  Sender: FDA-Public Use
  Company Number: NL-SANOFI-SYNTHELABO-F01200700507

PATIENT
  Sex: Female

DRUGS (3)
  1. LEUCOVORIN CALCIUM [Suspect]
     Route: 042
     Dates: start: 20070403
  2. FLUOROURACIL [Suspect]
     Dosage: 400MG/M2 IV BOLUS AND 600MG/M2 CONTINUOUS INFUSION Q2W
     Route: 042
     Dates: start: 20070403
  3. OXALIPLATIN [Suspect]
     Indication: COLON CANCER
     Dosage: DOSE NOT SPECIFIED
     Route: 042
     Dates: start: 20070403, end: 20070403

REACTIONS (2)
  - DIARRHOEA [None]
  - GASTROINTESTINAL NECROSIS [None]
